FAERS Safety Report 12270742 (Version 1)
Quarter: 2016Q2

REPORT INFORMATION
  Report Type: Spontaneous
  Country: US (occurrence: US)
  Receive Date: 20160415
  Receipt Date: 20160415
  Transmission Date: 20160815
  Serious: No
  Sender: FDA-Public Use
  Company Number: US-009507513-1604USA010250

PATIENT
  Sex: Female

DRUGS (1)
  1. NEXPLANON [Suspect]
     Active Substance: ETONOGESTREL
     Indication: CONTRACEPTION
     Dosage: 68 MG, UNK
     Route: 059
     Dates: start: 201601, end: 20160412

REACTIONS (6)
  - Implant site pain [Unknown]
  - Vomiting [Unknown]
  - Nausea [Unknown]
  - Implant site swelling [Unknown]
  - Mass [Unknown]
  - Implant site pruritus [Unknown]

NARRATIVE: CASE EVENT DATE: 2016
